FAERS Safety Report 6359015-9 (Version None)
Quarter: 2009Q3

REPORT INFORMATION
  Report Type: 
  Country: None (occurrence: None)
  Receive Date: 20090917
  Receipt Date: 20070507
  Transmission Date: 20100115
  Serious: Yes (Hospitalization, Other)
  Sender: FDA-Public Use
  Company Number: US-ASTRAZENECA-2006UW21467

PATIENT
  Age: 499 Month
  Sex: Male
  Weight: 86.4 kg

DRUGS (10)
  1. SEROQUEL [Suspect]
     Indication: ANXIETY
     Dosage: 25 MG TO 200 MG
     Route: 048
     Dates: start: 20050101, end: 20060301
  2. SEROQUEL [Suspect]
     Indication: BIPOLAR I DISORDER
     Dosage: 25 MG TO 200 MG
     Route: 048
     Dates: start: 20050101, end: 20060301
  3. SEROQUEL [Suspect]
     Dosage: 25 MG TO 200 MG
     Route: 048
     Dates: start: 20050101, end: 20060301
  4. PSYCHIATRIC MEDICATION [Concomitant]
  5. THIAMINE HCL [Concomitant]
     Dates: start: 20050404
  6. CATAPRES [Concomitant]
     Indication: BLOOD PRESSURE INCREASED
     Dosage: 0.1 TO 0.4 MG
     Route: 048
     Dates: start: 20050404
  7. CATAPRES [Concomitant]
     Dosage: TTS 2 PATCH, 1 PATCH TO SKIN WEEKLY
     Dates: start: 20060411
  8. TRAZODONE [Concomitant]
     Dates: start: 20060411
  9. ENALAPRIL MALEATE [Concomitant]
     Dates: start: 20060418
  10. NEURONTIN [Concomitant]
     Dosage: 600 TID
     Dates: start: 20050404

REACTIONS (10)
  - ALCOHOL ABUSE [None]
  - ALCOHOL DETOXIFICATION [None]
  - ALCOHOL POISONING [None]
  - ALCOHOL WITHDRAWAL SYNDROME [None]
  - ALCOHOLIC LIVER DISEASE [None]
  - ALCOHOLISM [None]
  - BLOOD PRESSURE INCREASED [None]
  - DIABETES MELLITUS [None]
  - GASTRITIS ALCOHOLIC [None]
  - HEPATITIS ALCOHOLIC [None]
